FAERS Safety Report 23135948 (Version 3)
Quarter: 2024Q4

REPORT INFORMATION
  Report Type: Report from Study
  Country: JP (occurrence: JP)
  Receive Date: 20231101
  Receipt Date: 20241231
  Transmission Date: 20250114
  Serious: Yes (Other)
  Sender: BOEHRINGER INGELHEIM
  Company Number: JP-NBI-BJ202316660

PATIENT
  Age: 51 Year
  Sex: Male
  Weight: 60 kg

DRUGS (6)
  1. SPEVIGO [Suspect]
     Active Substance: SPESOLIMAB-SBZO
     Indication: Pustular psoriasis
     Dates: start: 20230925, end: 20230925
  2. DIFLUPREDNATE [Concomitant]
     Active Substance: DIFLUPREDNATE
     Indication: Pustular psoriasis
     Dates: start: 20191126
  3. INFLIXIMAB(GENETICAL RECOMBINATION) [BIOSIMILAR 1] [Concomitant]
     Indication: Pustular psoriasis
     Dates: start: 20231005, end: 20231115
  4. RINDERON V [Concomitant]
     Active Substance: BETAMETHASONE VALERATE
     Indication: Pustular psoriasis
  5. CLOBETASOL [Concomitant]
     Active Substance: CLOBETASOL
     Indication: Pustular psoriasis
  6. OTEZLA [Concomitant]
     Active Substance: APREMILAST
     Indication: Pustular psoriasis
     Dates: start: 20231129

REACTIONS (7)
  - Pustule [Not Recovered/Not Resolved]
  - Joint swelling [Recovered/Resolved]
  - Peripheral swelling [Recovered/Resolved]
  - Erythema [Not Recovered/Not Resolved]
  - Erythema [Not Recovered/Not Resolved]
  - Erythema [Not Recovered/Not Resolved]
  - Therapeutic product effect incomplete [Unknown]

NARRATIVE: CASE EVENT DATE: 20231002
